FAERS Safety Report 18521498 (Version 2)
Quarter: 2020Q4

REPORT INFORMATION
  Report Type: Report from Study
  Country: BR (occurrence: BR)
  Receive Date: 20201119
  Receipt Date: 20201204
  Transmission Date: 20210114
  Serious: Yes (Hospitalization, Other)
  Sender: FDA-Public Use
  Company Number: NVSC2020BR307637

PATIENT
  Age: 79 Year
  Sex: Female
  Weight: 60 kg

DRUGS (1)
  1. DIOVAN AMLO FIX [Suspect]
     Active Substance: AMLODIPINE\VALSARTAN
     Indication: HYPERTENSION
     Dosage: 1 DF, QD (01 TABLET 320+10 MG), STARTED 15 YEARS AGO
     Route: 048

REACTIONS (24)
  - Pulmonary function test decreased [Not Recovered/Not Resolved]
  - Pain in extremity [Not Recovered/Not Resolved]
  - Illness [Recovering/Resolving]
  - Constipation [Recovering/Resolving]
  - Haemorrhoids [Recovering/Resolving]
  - Fall [Recovered/Resolved]
  - Pneumonia [Recovered/Resolved]
  - Intestinal obstruction [Recovered/Resolved]
  - Abdominal discomfort [Recovered/Resolved]
  - Insomnia [Not Recovered/Not Resolved]
  - Gait disturbance [Recovering/Resolving]
  - Hepatic cyst [Not Recovered/Not Resolved]
  - Spinal pain [Recovered/Resolved]
  - Renal impairment [Not Recovered/Not Resolved]
  - Gastrointestinal disorder [Not Recovered/Not Resolved]
  - Thrombosis [Recovered/Resolved]
  - Anaemia [Not Recovered/Not Resolved]
  - Congenital cystic kidney disease [Unknown]
  - General physical health deterioration [Recovering/Resolving]
  - Blood pressure increased [Recovering/Resolving]
  - Cardiovascular disorder [Not Recovered/Not Resolved]
  - Back pain [Not Recovered/Not Resolved]
  - Nausea [Not Recovered/Not Resolved]
  - Renal disorder [Not Recovered/Not Resolved]

NARRATIVE: CASE EVENT DATE: 202011
